FAERS Safety Report 8267075-3 (Version None)
Quarter: 2012Q2

REPORT INFORMATION
  Report Type: 
  Country: None (occurrence: None)
  Receive Date: 20120409
  Receipt Date: 20120326
  Transmission Date: 20120825
  Serious: Yes (Other)
  Sender: FDA-Public Use
  Company Number: US-CELGENEUS-163-22393-12033464

PATIENT

DRUGS (1)
  1. ISTODAX [Suspect]
     Dosage: 14 MILLIGRAM/SQ. METER
     Route: 041

REACTIONS (1)
  - IMMUNOSUPPRESSION [None]
